FAERS Safety Report 8488121-8 (Version None)
Quarter: 2012Q3

REPORT INFORMATION
  Report Type: 
  Country: None (occurrence: None)
  Receive Date: 20120705
  Receipt Date: 20120625
  Transmission Date: 20120928
  Serious: Yes (Hospitalization)
  Sender: FDA-Public Use
  Company Number: US-BAYER-2012-026166

PATIENT
  Age: 30 Year
  Sex: Female

DRUGS (3)
  1. YAZ [Suspect]
  2. LEXAPRO [Concomitant]
     Dosage: 20 MG, QD
     Route: 048
  3. YASMIN [Suspect]

REACTIONS (3)
  - PAIN [None]
  - CEREBRAL INFARCTION [None]
  - INJURY [None]
